FAERS Safety Report 4452328-7 (Version None)
Quarter: 2004Q3

REPORT INFORMATION
  Report Type: 
  Country: None (occurrence: None)
  Receive Date: 20040915
  Receipt Date: 20040902
  Transmission Date: 20050211
  Serious: No
  Sender: FDA-Public Use
  Company Number: 2004CG01725

PATIENT
  Sex: Female

DRUGS (1)
  1. MARCAINE [Suspect]
     Indication: LOCAL ANAESTHESIA
     Dates: start: 20031001, end: 20031001

REACTIONS (2)
  - ANAESTHETIC COMPLICATION [None]
  - SENSORY DISTURBANCE [None]
